FAERS Safety Report 17690542 (Version 3)
Quarter: 2021Q4

REPORT INFORMATION
  Report Type: Spontaneous
  Country: US (occurrence: US)
  Receive Date: 20200421
  Receipt Date: 20211019
  Transmission Date: 20220303
  Serious: Yes (Other)
  Sender: FDA-Public Use
  Company Number: 2020SE51813

PATIENT
  Age: 21510 Day
  Sex: Female
  Weight: 108.9 kg

DRUGS (74)
  1. NEXIUM [Suspect]
     Active Substance: ESOMEPRAZOLE MAGNESIUM
     Indication: Gastrooesophageal reflux disease
     Route: 048
     Dates: start: 198910, end: 201112
  2. NEXIUM [Suspect]
     Active Substance: ESOMEPRAZOLE MAGNESIUM
     Indication: Gastrooesophageal reflux disease
     Route: 048
     Dates: start: 2001, end: 2011
  3. PRILOSEC [Suspect]
     Active Substance: OMEPRAZOLE MAGNESIUM
     Indication: Gastrooesophageal reflux disease
     Route: 048
     Dates: start: 198910, end: 201112
  4. PRILOSEC [Suspect]
     Active Substance: OMEPRAZOLE MAGNESIUM
     Indication: Gastrooesophageal reflux disease
     Route: 048
     Dates: start: 20050117
  5. PRILOSEC OTC [Suspect]
     Active Substance: OMEPRAZOLE MAGNESIUM
     Route: 048
     Dates: start: 198910, end: 201112
  6. PREVACID [Suspect]
     Active Substance: LANSOPRAZOLE
     Indication: Gastrooesophageal reflux disease
     Route: 065
     Dates: start: 198910, end: 201112
  7. PREVACID [Suspect]
     Active Substance: LANSOPRAZOLE
     Indication: Gastrooesophageal reflux disease
     Route: 065
     Dates: start: 1995, end: 2011
  8. AMPICILLIN [Concomitant]
     Active Substance: AMPICILLIN
     Indication: Infection
     Dates: start: 2000
  9. MELOXICAM [Concomitant]
     Active Substance: MELOXICAM
     Indication: Arthritis
     Dates: start: 2000
  10. BETAMETHASONE/KETOROLAC [Concomitant]
     Indication: Pain
     Dates: start: 2000
  11. NAPROXEN [Concomitant]
     Active Substance: NAPROXEN
     Indication: Pain
     Dates: start: 2000
  12. AMOXICILLIN [Concomitant]
     Active Substance: AMOXICILLIN
     Indication: Infection
     Dates: start: 2000
  13. TRAMADOL [Concomitant]
     Active Substance: TRAMADOL
     Indication: Pain
     Dates: start: 2000
  14. VOLTAREN [Concomitant]
     Active Substance: DICLOFENAC SODIUM
     Indication: Pain
     Dates: start: 2000
  15. AVELOX [Concomitant]
     Active Substance: MOXIFLOXACIN HYDROCHLORIDE
     Indication: Infection
     Dates: start: 2000
  16. LOSARTAN [Concomitant]
     Active Substance: LOSARTAN
     Indication: Blood pressure abnormal
     Dates: start: 2000
  17. AZITHROMYCIN ANHYDROUS [Concomitant]
     Active Substance: AZITHROMYCIN ANHYDROUS
     Indication: Infection
     Dates: start: 2000
  18. LEVOFLOXACIN [Concomitant]
     Active Substance: LEVOFLOXACIN
     Indication: Infection
     Dates: start: 2000
  19. LASIX [Concomitant]
     Active Substance: FUROSEMIDE
     Indication: Oedema
     Dates: start: 2000
  20. LISINOPRIL [Concomitant]
     Active Substance: LISINOPRIL
     Indication: Blood pressure abnormal
     Dates: start: 2000
  21. LISINOPRIL [Concomitant]
     Active Substance: LISINOPRIL
     Indication: Cardiac failure
     Dates: start: 2000
  22. DOXEPIN [Concomitant]
     Active Substance: DOXEPIN
     Indication: Pain
     Dates: start: 2000
  23. FOSINOPRIL [Concomitant]
     Active Substance: FOSINOPRIL
  24. GLIPIZIDE [Concomitant]
     Active Substance: GLIPIZIDE
     Dates: start: 20060203
  25. METFORMIN [Concomitant]
     Active Substance: METFORMIN HYDROCHLORIDE
     Dates: start: 20060203
  26. HYDROCOD/ACETA [Concomitant]
     Dates: start: 20060411
  27. COREG [Concomitant]
     Active Substance: CARVEDILOL
  28. VITAMIN D [Concomitant]
     Active Substance: VITAMIN D NOS
  29. ALLOPURINOL [Concomitant]
     Active Substance: ALLOPURINOL
  30. PERCOCET [Concomitant]
     Active Substance: ACETAMINOPHEN\OXYCODONE HYDROCHLORIDE
  31. LEVEMIR [Concomitant]
     Active Substance: INSULIN DETEMIR
  32. CALCITRIOL [Concomitant]
     Active Substance: CALCITRIOL
  33. BRILINTA [Concomitant]
     Active Substance: TICAGRELOR
  34. ZOLPIDEM TARTRATE [Concomitant]
     Active Substance: ZOLPIDEM TARTRATE
  35. ASPIRIN [Concomitant]
     Active Substance: ASPIRIN
  36. HYDRALAZINE [Concomitant]
     Active Substance: HYDRALAZINE HYDROCHLORIDE
  37. CETIRIZINE HYDROCHLORIDE [Concomitant]
     Active Substance: CETIRIZINE HYDROCHLORIDE
  38. LINZESS [Concomitant]
     Active Substance: LINACLOTIDE
  39. TIZANIDINE HYDROCHLORIDE [Concomitant]
     Active Substance: TIZANIDINE HYDROCHLORIDE
  40. AMLODIPINE BESYLATE [Concomitant]
     Active Substance: AMLODIPINE BESYLATE
  41. FLEXERIL [Concomitant]
     Active Substance: CYCLOBENZAPRINE HYDROCHLORIDE
  42. POTASSIUM CHLORIDE [Concomitant]
     Active Substance: POTASSIUM CHLORIDE
  43. METFORMIN HYDROCHLORIDE [Concomitant]
     Active Substance: METFORMIN HYDROCHLORIDE
  44. BENZONATATE [Concomitant]
     Active Substance: BENZONATATE
  45. PREDNISOLONE ACETATE/NEOMYCIN SULFATE/POLYVINYL ALCOHOL/POLYMYXIN B SU [Concomitant]
  46. METHYLPREDNISOLONE [Concomitant]
     Active Substance: METHYLPREDNISOLONE
  47. FLUCONAZOLE [Concomitant]
     Active Substance: FLUCONAZOLE
  48. PHENDIMETRAZ [Concomitant]
  49. GLYCOPYRROLATE [Concomitant]
     Active Substance: GLYCOPYRROLATE
  50. EPOGEN [Concomitant]
     Active Substance: ERYTHROPOIETIN
  51. REGLAN [Concomitant]
     Active Substance: METOCLOPRAMIDE HYDROCHLORIDE
  52. BUMEX [Concomitant]
     Active Substance: BUMETANIDE
  53. CYCLOBENZAPRINE [Concomitant]
     Active Substance: CYCLOBENZAPRINE
  54. LORAZEPAM [Concomitant]
     Active Substance: LORAZEPAM
  55. SYMLINPEN [Concomitant]
     Active Substance: PRAMLINTIDE ACETATE
  56. CARISOPRODOL [Concomitant]
     Active Substance: CARISOPRODOL
  57. NITROFURANTOIN [Concomitant]
     Active Substance: NITROFURANTOIN
  58. LIDODERM [Concomitant]
     Active Substance: LIDOCAINE
  59. RELION [Concomitant]
  60. CEPHALEXIN [Concomitant]
     Active Substance: CEPHALEXIN
  61. FOLAST [Concomitant]
  62. DOXYCYCLINE HYCLATE [Concomitant]
     Active Substance: DOXYCYCLINE HYCLATE
  63. IBUPROFEN [Concomitant]
     Active Substance: IBUPROFEN
  64. PROMETHAZINE/ CODEINE [Concomitant]
  65. AMMONIUM CHLORIDE\DEXTROMETHORPHAN\SODIUM CITRATE [Concomitant]
     Active Substance: AMMONIUM CHLORIDE\DEXTROMETHORPHAN\SODIUM CITRATE
  66. PENICILLIN V POTASSIUM [Concomitant]
     Active Substance: PENICILLIN V POTASSIUM
  67. HEMOCYTE [Concomitant]
  68. OXYCODONE HYDROCHLORIDE [Concomitant]
     Active Substance: OXYCODONE HYDROCHLORIDE
  69. OXYCODONE AND ACETAMINOPHEN [Concomitant]
     Active Substance: ACETAMINOPHEN\OXYCODONE HYDROCHLORIDE
  70. IPRATROPIUM [Concomitant]
     Active Substance: IPRATROPIUM
  71. HYDROCORTISONE [Concomitant]
     Active Substance: HYDROCORTISONE
  72. ERYTHROMYCIN [Concomitant]
     Active Substance: ERYTHROMYCIN
  73. VIOXX [Concomitant]
     Active Substance: ROFECOXIB
  74. FLONASE [Concomitant]
     Active Substance: FLUTICASONE PROPIONATE

REACTIONS (6)
  - Chronic kidney disease [Not Recovered/Not Resolved]
  - Hyperparathyroidism secondary [Unknown]
  - Nephrogenic anaemia [Unknown]
  - End stage renal disease [Unknown]
  - Acute kidney injury [Unknown]
  - Renal failure [Unknown]

NARRATIVE: CASE EVENT DATE: 20150202
